FAERS Safety Report 5762297-5 (Version None)
Quarter: 2008Q2

REPORT INFORMATION
  Report Type: 
  Country: None (occurrence: None)
  Receive Date: 20080609
  Receipt Date: 20080529
  Transmission Date: 20081010
  Serious: Yes (Other)
  Sender: FDA-Public Use
  Company Number: US-JNJFOC-20080305942

PATIENT
  Sex: Male
  Weight: 86.18 kg

DRUGS (2)
  1. ULTRAM ER [Suspect]
     Indication: PAIN
     Route: 048
  2. IBUROFEN [Concomitant]

REACTIONS (5)
  - DIZZINESS [None]
  - MEDICATION ERROR [None]
  - PRURITUS [None]
  - URINARY RETENTION [None]
  - VOMITING [None]
